FAERS Safety Report 9684327 (Version 1)
Quarter: 2013Q4

REPORT INFORMATION
  Report Type: Spontaneous
  Country: NO (occurrence: NO)
  Receive Date: 20131112
  Receipt Date: 20131112
  Transmission Date: 20140711
  Serious: Yes (Hospitalization)
  Sender: FDA-Public Use
  Company Number: NO-UCBSA-102763

PATIENT
  Age: 69 Year
  Sex: Male

DRUGS (1)
  1. CIMZIA [Suspect]
     Indication: RHEUMATOID ARTHRITIS
     Dosage: UNKNOWN DOSE
     Dates: start: 20120604

REACTIONS (1)
  - Leiomyosarcoma [Unknown]
